FAERS Safety Report 7584966-7 (Version None)
Quarter: 2011Q2

REPORT INFORMATION
  Report Type: 
  Country: None (occurrence: None)
  Receive Date: 20110630
  Receipt Date: 20110624
  Transmission Date: 20111010
  Serious: Yes (Life-Threatening, Hospitalization)
  Sender: FDA-Public Use
  Company Number: JP-ASTRAZENECA-2010SE49996

PATIENT
  Age: 13259 Day
  Sex: Male

DRUGS (3)
  1. SEROQUEL [Suspect]
     Route: 048
     Dates: start: 20100702, end: 20100702
  2. DEPAKENE [Suspect]
     Route: 048
     Dates: start: 20100702, end: 20100702
  3. PROMETHAZINE HCL [Suspect]
     Route: 048
     Dates: start: 20100702, end: 20100702

REACTIONS (2)
  - COMA [None]
  - MULTIPLE DRUG OVERDOSE INTENTIONAL [None]
